FAERS Safety Report 9467880 (Version 4)
Quarter: 2013Q4

REPORT INFORMATION
  Report Type: Spontaneous
  Country: AU (occurrence: AU)
  Receive Date: 20130821
  Receipt Date: 20131130
  Transmission Date: 20140711
  Serious: Yes (Hospitalization, Other)
  Sender: FDA-Public Use
  Company Number: AU-009507513-1308AUS009164

PATIENT
  Age: 60 Year
  Sex: Male
  Weight: 70 kg

DRUGS (6)
  1. JANUVIA [Suspect]
     Indication: TYPE 2 DIABETES MELLITUS
     Dosage: 100 MG, BID
     Route: 048
     Dates: start: 2013, end: 2013
  2. JANUVIA [Suspect]
     Dosage: UNK
  3. JANUMET 50 MG/1000 MG [Suspect]
     Indication: TYPE 2 DIABETES MELLITUS
     Dosage: UNK
     Route: 048
     Dates: start: 20130415, end: 201308
  4. METFORMIN [Suspect]
     Indication: TYPE 2 DIABETES MELLITUS
     Dosage: 1000 MG TWICE DAILY
     Route: 048
     Dates: start: 201303, end: 2013
  5. VENTOLIN (ALBUTEROL SULFATE) [Suspect]
     Indication: ASTHMA
     Dosage: AS NEEDED
  6. SERETIDE [Concomitant]
     Indication: ASTHMA
     Dosage: 1 DF, QD
     Route: 055
     Dates: start: 201208

REACTIONS (10)
  - Hepatitis acute [Recovering/Resolving]
  - Malaise [Recovering/Resolving]
  - Weight decreased [Recovering/Resolving]
  - Diarrhoea [Unknown]
  - Fatigue [Recovering/Resolving]
  - Blood glucose increased [Unknown]
  - Blood pressure increased [Unknown]
  - Frequent bowel movements [Unknown]
  - Diabetes mellitus inadequate control [Recovering/Resolving]
  - Overdose [Unknown]
